FAERS Safety Report 8391177-4 (Version None)
Quarter: 2012Q2

REPORT INFORMATION
  Report Type: 
  Country: None (occurrence: None)
  Receive Date: 20120529
  Receipt Date: 20120515
  Transmission Date: 20120825
  Serious: Yes (Hospitalization)
  Sender: FDA-Public Use
  Company Number: US-ELI_LILLY_AND_COMPANY-US201204005148

PATIENT
  Sex: Female

DRUGS (17)
  1. FEXOFENADINE [Concomitant]
     Dosage: 180 MG, QD
  2. AMITIZA [Concomitant]
  3. CYMBALTA [Suspect]
     Dosage: UNK, UNKNOWN
     Route: 048
  4. ALBUTEROL [Concomitant]
     Dosage: UNK, PRN
  5. TESSALON [Concomitant]
     Dosage: 200 MG, PRN
  6. SOMA [Concomitant]
     Dosage: 250 MG, UNK
  7. OXYCODONE HCL [Concomitant]
     Dosage: 5 MG, PRN
  8. ROBAXIN [Concomitant]
     Dosage: 750 MG, EACH EVENING
  9. CYMBALTA [Suspect]
     Dosage: 60 MG, QD
     Route: 048
  10. SINGULAIR [Concomitant]
     Dosage: 10 MG, EACH EVENING
  11. XANAX [Concomitant]
     Dosage: 0.5 MG, PRN
  12. CYMBALTA [Suspect]
     Indication: DEPRESSION
     Dosage: 30 MG, QD
     Route: 048
     Dates: start: 20111027
  13. SYMBICORT [Concomitant]
     Dosage: UNK, PRN
  14. MULTI-VITAMIN [Concomitant]
     Dosage: UNK, QD
  15. CALCIUM [Concomitant]
     Dosage: 600 MG, BID
  16. VITAMIN D [Concomitant]
     Dosage: 1000 U, BID
  17. SYMBICORT [Concomitant]
     Dosage: 2 DF, BID

REACTIONS (4)
  - DRUG WITHDRAWAL SYNDROME [None]
  - IRON DEFICIENCY ANAEMIA [None]
  - BRONCHITIS [None]
  - ABDOMINAL PAIN [None]
